FAERS Safety Report 17907258 (Version 1)
Quarter: 2020Q2

REPORT INFORMATION
  Report Type: Spontaneous
  Country: US (occurrence: US)
  Receive Date: 20200617
  Receipt Date: 20200617
  Transmission Date: 20200714
  Serious: Yes (Hospitalization)
  Sender: FDA-Public Use
  Company Number: None

PATIENT
  Age: 72 Year
  Sex: Female
  Weight: 46 kg

DRUGS (4)
  1. ACYCLOVIR. [Concomitant]
     Active Substance: ACYCLOVIR
     Dates: start: 20200205, end: 20200310
  2. PIPERACILLIN-TAZOBACTAM (ZOSYN) 3.375 [Concomitant]
     Dates: start: 20200214, end: 20200219
  3. YESCARTA [Suspect]
     Active Substance: AXICABTAGENE CILOLEUCEL
     Indication: LYMPHOMA
     Dosage: ?          OTHER FREQUENCY:ONCE;?
     Route: 041
     Dates: start: 20200210, end: 20200210
  4. KEPPRA [Concomitant]
     Active Substance: LEVETIRACETAM
     Dates: start: 20200210, end: 20200311

REACTIONS (2)
  - Immune effector cell-associated neurotoxicity syndrome [None]
  - Cytokine release syndrome [None]

NARRATIVE: CASE EVENT DATE: 20200210
